FAERS Safety Report 5678729-7 (Version None)
Quarter: 2008Q1

REPORT INFORMATION
  Report Type: 
  Country: None (occurrence: None)
  Receive Date: 20080320
  Receipt Date: 20080304
  Transmission Date: 20080703
  Serious: Yes (Other)
  Sender: FDA-Public Use
  Company Number: 2005JP001908

PATIENT
  Age: 4 Year
  Sex: Female
  Weight: 16.5 kg

DRUGS (2)
  1. PROTOPIC [Suspect]
     Indication: DERMATITIS ATOPIC
     Dosage: 0.03 %, TOPICAL; 0.03 %, TOPICAL; 0.03 %, TOPICAL
     Route: 061
     Dates: start: 20050106
  2. ALLEGRA (FEXOFENADINE HYDROCHLORIDE) PER ORAL NOS [Concomitant]

REACTIONS (4)
  - HERPES ZOSTER [None]
  - KAPOSI'S VARICELLIFORM ERUPTION [None]
  - PHARYNGITIS STREPTOCOCCAL [None]
  - TONSILLITIS [None]
